FAERS Safety Report 17269584 (Version 2)
Quarter: 2020Q1

REPORT INFORMATION
  Report Type: Spontaneous
  Country: SE (occurrence: SE)
  Receive Date: 20200114
  Receipt Date: 20200116
  Transmission Date: 20200409
  Serious: Yes (Other)
  Sender: FDA-Public Use
  Company Number: SE-ABBVIE-20K-150-3228390-00

PATIENT

DRUGS (1)
  1. VENCLYXTO [Suspect]
     Active Substance: VENETOCLAX
     Indication: MYELODYSPLASTIC SYNDROME
     Route: 048

REACTIONS (3)
  - Aplasia [Unknown]
  - Off label use [Unknown]
  - Unevaluable event [Unknown]
